FAERS Safety Report 4975481-5 (Version None)
Quarter: 2006Q2

REPORT INFORMATION
  Report Type: 
  Country: None (occurrence: None)
  Receive Date: 20060417
  Receipt Date: 20060417
  Transmission Date: 20061013
  Serious: Yes (Hospitalization)
  Sender: FDA-Public Use
  Company Number: None

PATIENT
  Sex: Male
  Weight: 94 kg

DRUGS (1)
  1. VANCOMYCIN [Suspect]
     Indication: SEPSIS
     Dosage: 1500 MG EVERY 24 HRS IVPB
     Route: 042
     Dates: start: 20060331, end: 20060406

REACTIONS (1)
  - PYREXIA [None]
